FAERS Safety Report 9453228 (Version 1)
Quarter: 2013Q3

REPORT INFORMATION
  Report Type: Spontaneous
  Country: US (occurrence: US)
  Receive Date: 20130812
  Receipt Date: 20130812
  Transmission Date: 20140515
  Serious: Yes (Other)
  Sender: FDA-Public Use
  Company Number: US-ABBOTT-13P-163-1128992-00

PATIENT
  Sex: Female
  Weight: 74.91 kg

DRUGS (5)
  1. HUMIRA [Suspect]
     Indication: RHEUMATOID ARTHRITIS
     Dates: start: 2007, end: 2008
  2. PREDNISONE [Suspect]
     Indication: RHEUMATOID ARTHRITIS
  3. METHOTREXATE [Concomitant]
     Indication: RHEUMATOID ARTHRITIS
     Dates: end: 2008
  4. METHOTREXATE [Concomitant]
     Dates: start: 2012
  5. OXYCODONE [Concomitant]
     Indication: PAIN

REACTIONS (3)
  - Breast mass [Recovered/Resolved]
  - Injection site pain [Recovered/Resolved]
  - Cushing^s syndrome [Not Recovered/Not Resolved]
